FAERS Safety Report 6736078-X (Version None)
Quarter: 2010Q2

REPORT INFORMATION
  Report Type: 
  Country: None (occurrence: None)
  Receive Date: 20100521
  Receipt Date: 20100521
  Transmission Date: 20101027
  Serious: Yes (Other)
  Sender: FDA-Public Use
  Company Number: US-PFIZER INC-2009314511

PATIENT
  Sex: Male
  Weight: 95.2 kg

DRUGS (10)
  1. SUTENT [Suspect]
     Indication: RENAL CELL CARCINOMA
     Dosage: 37.5 MG, 1X/DAY
     Route: 048
     Dates: start: 19991101
  2. LISINOPRIL [Concomitant]
     Indication: HYPERTENSION
     Dosage: UNK
  3. TRAMADOL [Concomitant]
     Indication: PAIN
     Dosage: UNK
  4. TIMOLOL [Concomitant]
     Dosage: UNK
  5. LOVASTATIN [Concomitant]
     Dosage: UNK
  6. PROSCAR [Concomitant]
     Dosage: UNK
  7. XANAX [Concomitant]
     Dosage: UNK
  8. ACETYLSALICYLIC ACID [Concomitant]
     Dosage: UNK
  9. THOMAPYRIN N [Concomitant]
     Dosage: UNK
  10. VICODIN [Concomitant]
     Dosage: UNK

REACTIONS (3)
  - BLOOD CREATINE INCREASED [None]
  - CONTUSION [None]
  - DYSPNOEA [None]
